FAERS Safety Report 11966853 (Version 2)
Quarter: 2016Q2

REPORT INFORMATION
  Report Type: Spontaneous
  Country: US (occurrence: US)
  Receive Date: 20160127
  Receipt Date: 20160503
  Transmission Date: 20160815
  Serious: No
  Sender: FDA-Public Use
  Company Number: US-SHIRE-US201600887

PATIENT
  Sex: Male

DRUGS (1)
  1. LIALDA [Suspect]
     Active Substance: MESALAMINE
     Indication: COLITIS ULCERATIVE
     Dosage: UNK, UNKNOWN
     Route: 048

REACTIONS (2)
  - Chromaturia [Not Recovered/Not Resolved]
  - Product quality issue [Not Recovered/Not Resolved]
